FAERS Safety Report 6390841-6 (Version None)
Quarter: 2009Q4

REPORT INFORMATION
  Report Type: 
  Country: None (occurrence: None)
  Receive Date: 20091001
  Receipt Date: 20090630
  Transmission Date: 20100525
  Serious: No
  Sender: FDA-Public Use
  Company Number: 1000004667

PATIENT
  Age: 5 Decade
  Sex: Male

DRUGS (3)
  1. BYSTOLIC [Suspect]
     Indication: MALIGNANT HYPERTENSION
     Dosage: 20 MG (20 MG, 1 IN 1 D), ORAL
     Route: 048
  2. BYSTOLIC [Suspect]
     Indication: MALIGNANT HYPERTENSION
     Dosage: 40 MG (40 MG, 1 IN 1 D), ORAL; 20 MG (20 MG, 1 IN 1 D), ORAL
     Route: 048
  3. MULTIPLE MEDICATIONS (NOS) [Concomitant]

REACTIONS (2)
  - ORTHOSTATIC HYPOTENSION [None]
  - SYNCOPE [None]
